FAERS Safety Report 21777163 (Version 1)
Quarter: 2022Q4

REPORT INFORMATION
  Report Type: Spontaneous
  Country: US (occurrence: US)
  Receive Date: 20221226
  Receipt Date: 20221226
  Transmission Date: 20230113
  Serious: No
  Sender: FDA-Public Use
  Company Number: US-MIGRATION_PFIZER-2022BHV002717

PATIENT
  Age: 60 Year

DRUGS (1)
  1. NURTEC ODT [Suspect]
     Active Substance: RIMEGEPANT SULFATE
     Indication: Headache
     Dosage: HAD TAKEN ABOUT 6 TABLETS EVERY OTHER DAY FOR PREVENTION
     Route: 065

REACTIONS (1)
  - Drug ineffective [Not Recovered/Not Resolved]
